FAERS Safety Report 9363256 (Version 2)
Quarter: 2013Q3

REPORT INFORMATION
  Report Type: Spontaneous
  Country: US (occurrence: US)
  Receive Date: 20130624
  Receipt Date: 20130812
  Transmission Date: 20140515
  Serious: No
  Sender: FDA-Public Use
  Company Number: US-PFIZER INC-2013186736

PATIENT
  Sex: Female
  Weight: 47.62 kg

DRUGS (3)
  1. ADVIL [Suspect]
     Indication: MIGRAINE
     Dosage: 200 MG, UNK
  2. SYNTHROID [Concomitant]
     Indication: THYROID DISORDER
     Dosage: UNK
  3. NEXIUM [Concomitant]
     Indication: GASTRITIS
     Dosage: UNK

REACTIONS (3)
  - Poor quality drug administered [Unknown]
  - Blood test abnormal [Unknown]
  - Product colour issue [Unknown]
